FAERS Safety Report 5835460-2 (Version None)
Quarter: 2008Q3

REPORT INFORMATION
  Report Type: 
  Country: None (occurrence: None)
  Receive Date: 20080806
  Receipt Date: 20080728
  Transmission Date: 20090109
  Serious: Yes (Death, Life-Threatening)
  Sender: FDA-Public Use
  Company Number: BE-WATSON-2008-03415

PATIENT
  Sex: Female

DRUGS (6)
  1. TRELSTAR DEPOT [Suspect]
     Indication: BREAST CANCER FEMALE
     Dosage: 3.75 MG, Q 4 WEEKS
     Route: 042
     Dates: start: 20060719, end: 20080519
  2. EXEMESTANE [Suspect]
     Indication: BREAST CANCER FEMALE
     Dosage: 25 MG, UNKNOWN
     Route: 048
     Dates: start: 20060720, end: 20080519
  3. PAROXETINE HCL [Concomitant]
     Indication: DEPRESSION
     Dosage: 20 MG, DAILY
     Route: 048
     Dates: start: 20010101, end: 20070401
  4. CITALOPRAM HYDROBROMIDE [Concomitant]
     Indication: DEPRESSION
     Dosage: 20 MG, DAILY
     Route: 065
     Dates: start: 20080101, end: 20080519
  5. REMERGON [Concomitant]
     Indication: DEPRESSION
     Dosage: 15 MG, DAILY
     Route: 065
     Dates: start: 20080101, end: 20080501
  6. RANITIDINE HCL [Concomitant]
     Indication: DRUG USE FOR UNKNOWN INDICATION
     Dosage: UNK
     Route: 065
     Dates: start: 20080101, end: 20080101

REACTIONS (3)
  - HEPATITIS ALCOHOLIC [None]
  - HYPERBILIRUBINAEMIA [None]
  - LIVER DISORDER [None]
